FAERS Safety Report 8722014 (Version 2)
Quarter: 2012Q4

REPORT INFORMATION
  Report Type: 
  Country: US (occurrence: US)
  Receive Date: 20120814
  Receipt Date: 20121130
  Transmission Date: 20130627
  Serious: Yes (Hospitalization)
  Sender: FDA-Public Use
  Company Number: US-BAYER-2012-081733

PATIENT
  Age: 35 Year
  Sex: Female
  Weight: 54.42 kg

DRUGS (4)
  1. YAZ [Suspect]
     Dosage: UNK
     Dates: start: 200812, end: 201004
  2. ZOLOFT [Concomitant]
     Indication: ANXIETY
  3. ZOLOFT [Concomitant]
     Indication: DEPRESSION
  4. ZOLOFT [Concomitant]
     Indication: MOOD ALTERATION NOS

REACTIONS (11)
  - Cerebrovascular accident [None]
  - Pain [None]
  - Injury [None]
  - Emotional distress [None]
  - Pain [None]
  - Anxiety [None]
  - General physical health deterioration [None]
  - Hemiparesis [None]
  - Visual impairment [None]
  - Hypoaesthesia [None]
  - Paraesthesia [None]
